FAERS Safety Report 24818994 (Version 4)
Quarter: 2025Q1

REPORT INFORMATION
  Report Type: Report from Study
  Country: US (occurrence: US)
  Receive Date: 20250108
  Receipt Date: 20250209
  Transmission Date: 20250409
  Serious: Yes (Other)
  Sender: ABBVIE
  Company Number: US-ABBVIE-6074882

PATIENT
  Age: 72 Year
  Sex: Male
  Weight: 74.842 kg

DRUGS (6)
  1. HUMIRA [Suspect]
     Active Substance: ADALIMUMAB
     Indication: Uveitis
     Dosage: FORM STRENGTH: 40 MILLIGRAM
     Route: 058
     Dates: start: 20221217, end: 20250114
  2. AMLODIPINE [Concomitant]
     Active Substance: AMLODIPINE BESYLATE
     Indication: Hypertension
  3. Lilpitor [Concomitant]
     Indication: Blood cholesterol increased
  4. FOLIC ACID [Concomitant]
     Active Substance: FOLIC ACID
     Indication: Product used for unknown indication
  5. VITAMIN D3 [Concomitant]
     Active Substance: CHOLECALCIFEROL
     Indication: Product used for unknown indication
  6. VITAMIN B12 [Concomitant]
     Active Substance: CYANOCOBALAMIN
     Indication: Product used for unknown indication

REACTIONS (9)
  - Pulmonary oedema [Recovering/Resolving]
  - Pain [Not Recovered/Not Resolved]
  - Dysstasia [Unknown]
  - Dizziness postural [Recovering/Resolving]
  - Renal cancer metastatic [Not Recovered/Not Resolved]
  - Muscle spasms [Recovering/Resolving]
  - Chest discomfort [Unknown]
  - Back pain [Not Recovered/Not Resolved]
  - Metastases to lung [Not Recovered/Not Resolved]

NARRATIVE: CASE EVENT DATE: 20241201
